FAERS Safety Report 4685401-9 (Version None)
Quarter: 2005Q2

REPORT INFORMATION
  Report Type: 
  Country: None (occurrence: None)
  Receive Date: 20050608
  Receipt Date: 20050527
  Transmission Date: 20051028
  Serious: Yes (Hospitalization)
  Sender: FDA-Public Use
  Company Number: FR-GLAXOSMITHKLINE-B0382588A

PATIENT
  Age: 80 Year
  Sex: Female

DRUGS (8)
  1. DEROXAT [Suspect]
     Indication: ILL-DEFINED DISORDER
     Dosage: 20MG PER DAY
     Route: 048
     Dates: start: 20050415, end: 20050427
  2. EUPRESSYL [Concomitant]
     Indication: ILL-DEFINED DISORDER
     Route: 065
  3. ALDACTONE [Concomitant]
     Indication: ILL-DEFINED DISORDER
     Route: 065
  4. NEXIUM [Concomitant]
     Indication: ILL-DEFINED DISORDER
     Route: 065
  5. VASTAREL [Concomitant]
     Indication: ILL-DEFINED DISORDER
     Route: 065
  6. DOGMATIL [Concomitant]
     Indication: ILL-DEFINED DISORDER
     Route: 065
  7. CETORNAN [Concomitant]
     Indication: ILL-DEFINED DISORDER
     Route: 065
  8. DIFFU K [Concomitant]
     Indication: ILL-DEFINED DISORDER
     Route: 065

REACTIONS (4)
  - CONFUSIONAL STATE [None]
  - GENERAL PHYSICAL HEALTH DETERIORATION [None]
  - HYPONATRAEMIA [None]
  - MOBILITY DECREASED [None]
